FAERS Safety Report 6701583-9 (Version None)
Quarter: 2010Q2

REPORT INFORMATION
  Report Type: 
  Country: None (occurrence: None)
  Receive Date: 20100429
  Receipt Date: 20100420
  Transmission Date: 20101027
  Serious: Yes (Other)
  Sender: FDA-Public Use
  Company Number: US-WYE-H14692210

PATIENT
  Age: 61 Year
  Sex: Male
  Weight: 95.34 kg

DRUGS (5)
  1. ADVIL PM [Suspect]
     Indication: INSOMNIA
     Dosage: 1 TABLET EVERY 1 PRN
     Route: 048
     Dates: start: 20100401, end: 20100415
  2. NEXIUM [Concomitant]
     Dosage: UNKNOWN
     Route: 048
  3. AVODART [Concomitant]
     Dosage: UNKNOWN
     Route: 048
  4. DIOVAN [Concomitant]
     Dosage: UNKNOWN
     Route: 048
  5. UROXATRAL [Concomitant]
     Dosage: UNKNOWN
     Route: 048

REACTIONS (4)
  - DERMATITIS BULLOUS [None]
  - GENERALISED ERYTHEMA [None]
  - HYPERSENSITIVITY [None]
  - WHEEZING [None]
